FAERS Safety Report 16361176 (Version 16)
Quarter: 2019Q3

REPORT INFORMATION
  Report Type: Report from Study
  Country: CO (occurrence: CO)
  Receive Date: 20190528
  Receipt Date: 20190929
  Transmission Date: 20191004
  Serious: Yes (Hospitalization)
  Sender: FDA-Public Use
  Company Number: PHHY2018CO147944

PATIENT
  Age: 38 Year
  Sex: Female
  Weight: 93 kg

DRUGS (9)
  1. CICLOSPORIN [Suspect]
     Active Substance: CYCLOSPORINE
     Dosage: 300 MG, QD
     Route: 065
  2. PREGABALIN. [Suspect]
     Active Substance: PREGABALIN
     Indication: PRODUCT USED FOR UNKNOWN INDICATION
     Route: 065
  3. CICLOSPORIN [Suspect]
     Active Substance: CYCLOSPORINE
     Indication: IMMUNE THROMBOCYTOPENIC PURPURA
     Dosage: UNK, Q12H
     Route: 048
  4. ACYCLOVIR. [Concomitant]
     Active Substance: ACYCLOVIR
     Dosage: 50 MG, UNK
     Route: 065
  5. REVOLADE [Suspect]
     Active Substance: ELTROMBOPAG
     Indication: IMMUNE THROMBOCYTOPENIC PURPURA
     Dosage: 150 MG, QD
     Route: 048
     Dates: start: 201803
  6. REVOLADE [Suspect]
     Active Substance: ELTROMBOPAG
     Dosage: 150 MG, QD
     Route: 048
     Dates: start: 20180720, end: 201902
  7. REVOLADE [Suspect]
     Active Substance: ELTROMBOPAG
     Dosage: 150 MG, QD
     Route: 048
  8. ACYCLOVIR. [Concomitant]
     Active Substance: ACYCLOVIR
     Indication: PRODUCT USED FOR UNKNOWN INDICATION
     Route: 065
  9. NITROFURANTOIN. [Concomitant]
     Active Substance: NITROFURANTOIN
     Indication: PRODUCT USED FOR UNKNOWN INDICATION
     Route: 065

REACTIONS (18)
  - Vomiting [Unknown]
  - Weight decreased [Unknown]
  - Discomfort [Unknown]
  - Incorrect dose administered [Unknown]
  - Decreased immune responsiveness [Unknown]
  - Kidney infection [Unknown]
  - Red blood cell count increased [Unknown]
  - Ovarian cyst [Recovered/Resolved]
  - Furuncle [Recovered/Resolved]
  - Asthenia [Not Recovered/Not Resolved]
  - Abdominal pain upper [Unknown]
  - Fatigue [Not Recovered/Not Resolved]
  - Bacterial infection [Recovered/Resolved]
  - Platelet count decreased [Unknown]
  - Haematuria [Unknown]
  - Petechiae [Unknown]
  - Appendicitis [Recovered/Resolved]
  - Haematemesis [Unknown]

NARRATIVE: CASE EVENT DATE: 20181031
